FAERS Safety Report 4318695-X (Version None)
Quarter: 2004Q1

REPORT INFORMATION
  Report Type: 
  Country: None (occurrence: None)
  Receive Date: 20040315
  Receipt Date: 20040303
  Transmission Date: 20041129
  Serious: Yes (Death)
  Sender: FDA-Public Use
  Company Number: BE-JNJFOC-20040200117

PATIENT
  Age: 58 Year
  Sex: Male

DRUGS (24)
  1. CISAPRIDE (CISAPRIDE) TABLETS [Suspect]
     Indication: DIABETIC GASTROPARESIS
     Dosage: 10 MG, 4 IN 1 DAY
     Dates: start: 20030724
  2. PROZAC [Concomitant]
  3. LIPITOR [Concomitant]
  4. TICLOPIDINE (TICLOPIDINE) [Concomitant]
  5. CORDARONE [Concomitant]
  6. FERROGRAD (FERROUS SULFATE EXSICCATED) [Concomitant]
  7. DILTIAZEM HYDROCHLORIDE [Concomitant]
  8. XANTHIUM (THEOPHYLLINE) [Concomitant]
  9. CORVATARD (MOLSIDOMINE) [Concomitant]
  10. ZANTAC [Concomitant]
  11. BUMETANIDE [Concomitant]
  12. CALCIUM CARBONATE (CALCIUM CARBONATE) [Concomitant]
  13. DIAFUSOR (GLYCERYL TRINITRATE) [Concomitant]
  14. ALDACTONE [Concomitant]
  15. AMLODIPINE BESYLATE [Concomitant]
  16. FLUNITRAZEPAM (FLUNITRAZEPAM) [Concomitant]
  17. LEVOTHYROXINE SODIUM [Concomitant]
  18. INSULATARD NPH HUMAN [Concomitant]
  19. DUOVENT AEROSOL (DUOVENT) [Concomitant]
  20. SERETIDE (SERETIDE) [Concomitant]
  21. MARCUMAR [Concomitant]
  22. MEDROL [Concomitant]
  23. AUGMENTIN [Concomitant]
  24. ACTRAPID (INSULIN HUMAN) INJECTION [Concomitant]

REACTIONS (1)
  - MYOCARDIAL INFARCTION [None]
